FAERS Safety Report 8457671-2 (Version None)
Quarter: 2012Q2

REPORT INFORMATION
  Report Type: 
  Country: None (occurrence: None)
  Receive Date: 20120618
  Receipt Date: 20120618
  Transmission Date: 20120825
  Serious: No
  Sender: FDA-Public Use
  Company Number: None

PATIENT
  Sex: Female
  Weight: 45.3597 kg

DRUGS (1)
  1. PRAVASTATIN SODIUM [Suspect]
     Indication: BLOOD CHOLESTEROL INCREASED
     Dosage: 10 MGM QD PO
     Route: 048

REACTIONS (3)
  - BACK PAIN [None]
  - ACTIVITIES OF DAILY LIVING IMPAIRED [None]
  - COLD SWEAT [None]
